FAERS Safety Report 8417074-3 (Version None)
Quarter: 2012Q2

REPORT INFORMATION
  Report Type: 
  Country: None (occurrence: None)
  Receive Date: 20120606
  Receipt Date: 20120531
  Transmission Date: 20120825
  Serious: Yes (Hospitalization, Other)
  Sender: FDA-Public Use
  Company Number: US-ELI_LILLY_AND_COMPANY-US201206000769

PATIENT
  Sex: Female

DRUGS (1)
  1. HUMALOG [Suspect]
     Indication: DIABETES MELLITUS
     Dosage: UNK, PRN
     Dates: start: 20060101

REACTIONS (8)
  - ANEURYSM [None]
  - VISUAL IMPAIRMENT [None]
  - PNEUMONIA [None]
  - MEMORY IMPAIRMENT [None]
  - INFECTION [None]
  - OPTIC ISCHAEMIC NEUROPATHY [None]
  - CATARACT [None]
  - DYSPNOEA [None]
